FAERS Safety Report 10670238 (Version 1)
Quarter: 2014Q4

REPORT INFORMATION
  Report Type: Spontaneous
  Country: US (occurrence: US)
  Receive Date: 20141223
  Receipt Date: 20141223
  Transmission Date: 20150529
  Serious: No
  Sender: FDA-Public Use
  Company Number: US-BIOGENIDEC-2014BI135328

PATIENT
  Sex: Female

DRUGS (3)
  1. TYSABRI [Suspect]
     Active Substance: NATALIZUMAB
     Indication: MULTIPLE SCLEROSIS
     Route: 042
     Dates: start: 20070815, end: 20081003
  2. COPAXONE [Concomitant]
     Active Substance: GLATIRAMER ACETATE
     Indication: PRODUCT USED FOR UNKNOWN INDICATION
  3. TYSABRI [Suspect]
     Active Substance: NATALIZUMAB
     Indication: MULTIPLE SCLEROSIS
     Route: 042
     Dates: start: 20090804

REACTIONS (13)
  - Arterial disorder [Unknown]
  - Multiple sclerosis [Unknown]
  - Sensory disturbance [Unknown]
  - Fatigue [Not Recovered/Not Resolved]
  - Injection site atrophy [Unknown]
  - Memory impairment [Not Recovered/Not Resolved]
  - Sensory loss [Unknown]
  - Nuclear magnetic resonance imaging abnormal [Unknown]
  - Cognitive disorder [Unknown]
  - Pain in extremity [Unknown]
  - Central nervous system lesion [Unknown]
  - Vein disorder [Unknown]
  - Multiple sclerosis relapse [Recovered/Resolved]

NARRATIVE: CASE EVENT DATE: 2007
